FAERS Safety Report 23840688 (Version 1)
Quarter: 2024Q2

REPORT INFORMATION
  Report Type: Spontaneous
  Country: DE (occurrence: DE)
  Receive Date: 20240510
  Receipt Date: 20240510
  Transmission Date: 20240716
  Serious: Yes (Hospitalization)
  Sender: FDA-Public Use
  Company Number: DE-NOVITIUMPHARMA-2024DENVP00764

PATIENT
  Age: 63 Year
  Sex: Female

DRUGS (5)
  1. ACYCLOVIR [Suspect]
     Active Substance: ACYCLOVIR
     Indication: Genital herpes simplex
  2. FAMCICLOVIR [Concomitant]
     Active Substance: FAMCICLOVIR
  3. FOSCARNET [Concomitant]
     Active Substance: FOSCARNET
  4. GANCICLOVIR [Concomitant]
     Active Substance: GANCICLOVIR
  5. VALACYCLOVIR HYDROCHLORIDE [Concomitant]
     Active Substance: VALACYCLOVIR HYDROCHLORIDE

REACTIONS (1)
  - Therapy non-responder [Unknown]
